FAERS Safety Report 18050612 (Version 4)
Quarter: 2020Q4

REPORT INFORMATION
  Report Type: Spontaneous
  Country: JP (occurrence: JP)
  Receive Date: 20200721
  Receipt Date: 20201125
  Transmission Date: 20210113
  Serious: Yes (Hospitalization, Disabling, Other)
  Sender: FDA-Public Use
  Company Number: JP-ELI_LILLY_AND_COMPANY-JP202007005333

PATIENT
  Age: 63 Year
  Sex: Male

DRUGS (6)
  1. KEYTRUDA [Suspect]
     Active Substance: PEMBROLIZUMAB
     Indication: LUNG ADENOCARCINOMA STAGE III
     Dosage: 200 MG, SINGLE
     Route: 042
     Dates: start: 20190807, end: 20190807
  2. ALIMTA [Suspect]
     Active Substance: PEMETREXED DISODIUM
     Indication: LUNG ADENOCARCINOMA STAGE III
     Dosage: 950 MG, CYCLICAL
     Route: 041
     Dates: start: 20190807, end: 20191126
  3. CARBOPLATIN. [Suspect]
     Active Substance: CARBOPLATIN
     Indication: LUNG ADENOCARCINOMA STAGE III
     Dosage: 800 MG, SINGLE
     Route: 042
     Dates: start: 20191126, end: 20191126
  4. METHYCOBAL [Concomitant]
     Active Substance: METHYLCOBALAMIN
     Dosage: 1000 UG, CYCLICAL
     Route: 042
     Dates: start: 20190731, end: 20191204
  5. PANVITAN [ASCORBIC ACID;CALCIUM PANTOTHENATE; [Concomitant]
     Dosage: 1 G, DAILY
     Route: 048
     Dates: start: 20190731, end: 20191218
  6. CARBOPLATIN. [Concomitant]
     Active Substance: CARBOPLATIN
     Indication: LUNG ADENOCARCINOMA STAGE III
     Dosage: UNK
     Route: 042
     Dates: start: 20190807

REACTIONS (5)
  - Pemphigoid [Recovering/Resolving]
  - Myelosuppression [Unknown]
  - Stevens-Johnson syndrome [Recovering/Resolving]
  - Excessive granulation tissue [Unknown]
  - Malignant neoplasm progression [Unknown]

NARRATIVE: CASE EVENT DATE: 20190819
